FAERS Safety Report 22602645 (Version 1)
Quarter: 2023Q2

REPORT INFORMATION
  Report Type: Report from Study
  Country: US (occurrence: US)
  Receive Date: 20230615
  Receipt Date: 20230615
  Transmission Date: 20230721
  Serious: Yes (Hospitalization)
  Sender: FDA-Public Use
  Company Number: US-AMGEN-USACT2023101880

PATIENT
  Age: 55 Year
  Sex: Male
  Weight: 96.8 kg

DRUGS (4)
  1. SOTORASIB [Suspect]
     Active Substance: SOTORASIB
     Indication: Non-small cell lung cancer
     Dosage: 960 MILLIGRAM, QD
     Route: 048
     Dates: start: 20221215, end: 20230531
  2. AVUTOMETINIB [Suspect]
     Active Substance: AVUTOMETINIB
     Indication: Non-small cell lung cancer
     Dosage: 4 MILLIGRAM, 2 TIMES/WK
     Route: 048
     Dates: start: 20221215, end: 20230521
  3. ZETIA [Concomitant]
     Active Substance: EZETIMIBE
     Dosage: UNK
  4. LASIX [Concomitant]
     Active Substance: FUROSEMIDE
     Dosage: UNK
     Dates: start: 20230216

REACTIONS (2)
  - Embolism [Not Recovered/Not Resolved]
  - Arthralgia [Not Recovered/Not Resolved]

NARRATIVE: CASE EVENT DATE: 20230604
